FAERS Safety Report 4924998-8 (Version None)
Quarter: 2006Q1

REPORT INFORMATION
  Report Type: 
  Country: None (occurrence: None)
  Receive Date: 20060222
  Receipt Date: 20060207
  Transmission Date: 20060701
  Serious: Yes (Hospitalization)
  Sender: FDA-Public Use
  Company Number: PHBS2005JP18918

PATIENT
  Age: 76 Year
  Sex: Male

DRUGS (1)
  1. VISUDYNE [Suspect]
     Indication: MACULAR DEGENERATION
     Dates: start: 20051219, end: 20051219

REACTIONS (4)
  - BLOOD CREATININE INCREASED [None]
  - CULTURE URINE POSITIVE [None]
  - STREPTOCOCCAL SEPSIS [None]
  - URINARY TRACT INFECTION [None]
